FAERS Safety Report 5408686-X (Version None)
Quarter: 2007Q3

REPORT INFORMATION
  Report Type: 
  Country: None (occurrence: None)
  Receive Date: 20070808
  Receipt Date: 20070806
  Transmission Date: 20080115
  Serious: Yes (Hospitalization)
  Sender: FDA-Public Use
  Company Number: A0667089A

PATIENT
  Age: 51 Year
  Sex: Male
  Weight: 76.4 kg

DRUGS (2)
  1. PAZOPANIB [Suspect]
     Indication: MALIGNANT GLIOMA
     Dosage: 400MG PER DAY
     Route: 048
     Dates: start: 20070530
  2. LAPATINIB [Suspect]
     Indication: MALIGNANT GLIOMA
     Dosage: 1000MG PER DAY
     Route: 048
     Dates: start: 20070530

REACTIONS (7)
  - ABDOMINAL PAIN [None]
  - BLOOD AMYLASE INCREASED [None]
  - BLOOD PRESSURE INCREASED [None]
  - CHEST PAIN [None]
  - LIPASE INCREASED [None]
  - MUSCULOSKELETAL PAIN [None]
  - PANCREATITIS [None]
